FAERS Safety Report 6273876-3 (Version None)
Quarter: 2009Q3

REPORT INFORMATION
  Report Type: 
  Country: None (occurrence: None)
  Receive Date: 20090720
  Receipt Date: 20090710
  Transmission Date: 20100115
  Serious: Yes (Life-Threatening, Hospitalization, Other)
  Sender: FDA-Public Use
  Company Number: US-BAYER-200836339NA

PATIENT
  Age: 67 Year
  Sex: Female

DRUGS (1)
  1. TRASYLOL [Suspect]
     Indication: CORONARY ARTERY BYPASS
     Dates: start: 20040702

REACTIONS (36)
  - ADVERSE EVENT [None]
  - AGEUSIA [None]
  - ANHEDONIA [None]
  - ANXIETY [None]
  - ASTHENIA [None]
  - BALANCE DISORDER [None]
  - BRAIN INJURY [None]
  - CARDIAC ARREST [None]
  - CARDIAC DISORDER [None]
  - COAGULOPATHY [None]
  - DECREASED APPETITE [None]
  - DEPRESSION [None]
  - DYSGEUSIA [None]
  - EMOTIONAL DISTRESS [None]
  - FEAR [None]
  - GAIT DISTURBANCE [None]
  - GASTROINTESTINAL INJURY [None]
  - GRAFT THROMBOSIS [None]
  - HAEMORRHOIDAL HAEMORRHAGE [None]
  - IMMUNODEFICIENCY [None]
  - INFECTION [None]
  - INJURY [None]
  - MENTAL DISORDER [None]
  - MULTI-ORGAN FAILURE [None]
  - NERVOUS SYSTEM DISORDER [None]
  - PAIN [None]
  - PAROSMIA [None]
  - RENAL DISORDER [None]
  - RENAL FAILURE [None]
  - RENAL IMPAIRMENT [None]
  - RENAL INJURY [None]
  - STRESS [None]
  - THROMBOSIS [None]
  - UNEVALUABLE EVENT [None]
  - VASCULAR INJURY [None]
  - WEIGHT DECREASED [None]
